FAERS Safety Report 6647885-6 (Version None)
Quarter: 2010Q1

REPORT INFORMATION
  Report Type: 
  Country: None (occurrence: None)
  Receive Date: 20100318
  Receipt Date: 20100309
  Transmission Date: 20100710
  Serious: Yes (Other)
  Sender: FDA-Public Use
  Company Number: CV20100122

PATIENT
  Age: 49 Year
  Sex: Female

DRUGS (2)
  1. SODIUM BICARBONATE [Suspect]
     Indication: CERUMEN REMOVAL
  2. EAREX (EAREX)(EAREX) [Concomitant]

REACTIONS (4)
  - APPLICATION SITE PAIN [None]
  - OTITIS EXTERNA [None]
  - SKIN EXFOLIATION [None]
  - THERMAL BURN [None]
